FAERS Safety Report 15056774 (Version 1)
Quarter: 2018Q2

REPORT INFORMATION
  Report Type: Spontaneous
  Country: US (occurrence: US)
  Receive Date: 20180604
  Receipt Date: 20180604
  Transmission Date: 20180711
  Serious: Yes (Other)
  Sender: FDA-Public Use
  Company Number: None

PATIENT
  Age: 75 Year
  Sex: Male

DRUGS (1)
  1. H.P. ACTHAR [Suspect]
     Active Substance: CORTICOTROPIN
     Dosage: ?          OTHER DOSE:80 UNITS;OTHER FREQUENCY:OTHER;?
     Route: 058
     Dates: start: 20180523, end: 20180604

REACTIONS (1)
  - Swelling face [None]

NARRATIVE: CASE EVENT DATE: 20180604
